FAERS Safety Report 12652219 (Version 1)
Quarter: 2016Q3

REPORT INFORMATION
  Report Type: Spontaneous
  Country: US (occurrence: US)
  Receive Date: 20160815
  Receipt Date: 20160815
  Transmission Date: 20161109
  Serious: No
  Sender: FDA-Public Use
  Company Number: US-GLAXOSMITHKLINE-US2016GSK111805

PATIENT
  Sex: Female

DRUGS (1)
  1. ADVAIR DISKUS [Suspect]
     Active Substance: FLUTICASONE PROPIONATE\SALMETEROL XINAFOATE
     Indication: PRODUCT USED FOR UNKNOWN INDICATION
     Dosage: DOSE/STRENGTH 500/50 MCG

REACTIONS (6)
  - Exostosis [Unknown]
  - Neuropathy peripheral [Unknown]
  - Foot deformity [Unknown]
  - Foot operation [Unknown]
  - Arthritis [Unknown]
  - Vertigo [Unknown]
